FAERS Safety Report 9979761 (Version 1)
Quarter: 2014Q1

REPORT INFORMATION
  Report Type: Report from Study
  Country: US (occurrence: US)
  Receive Date: 20140306
  Receipt Date: 20140306
  Transmission Date: 20141002
  Serious: No
  Sender: FDA-Public Use
  Company Number: US-ABBVIE-13P-163-1171207-00

PATIENT
  Sex: Female

DRUGS (18)
  1. HUMIRA [Suspect]
     Indication: RHEUMATOID ARTHRITIS
  2. CORTISONE [Suspect]
     Indication: SWELLING
     Dosage: ABOUT EVERY 6 TO 8 WEEKS
     Dates: start: 2012, end: 201307
  3. CORTISONE [Suspect]
     Indication: PAIN
  4. METHOTREXATE [Concomitant]
     Indication: PRODUCT USED FOR UNKNOWN INDICATION
  5. METFORMIN [Concomitant]
     Indication: DIABETES MELLITUS
  6. RANITIDINE [Concomitant]
     Indication: GASTROOESOPHAGEAL REFLUX DISEASE
  7. GLIPIZIDE [Concomitant]
     Indication: DIABETES MELLITUS
  8. FLUTICASONE [Concomitant]
     Indication: HYPERSENSITIVITY
  9. ALLOPURINOL [Concomitant]
     Indication: GOUT
  10. CLONAZEPAM [Concomitant]
     Indication: DEPRESSION
  11. CLONAZEPAM [Concomitant]
     Indication: PANIC ATTACK
  12. LORATADINE [Concomitant]
     Indication: HYPERSENSITIVITY
  13. SERTRALINE [Concomitant]
     Indication: DEPRESSION
  14. SERTRALINE [Concomitant]
     Indication: ANXIETY
  15. ZINC [Concomitant]
     Indication: PRODUCT USED FOR UNKNOWN INDICATION
  16. FOLIC ACID [Concomitant]
     Indication: PRODUCT USED FOR UNKNOWN INDICATION
  17. PRAVASTATIN [Concomitant]
     Indication: BLOOD CHOLESTEROL INCREASED
  18. UNKNOWN MEDICATION [Concomitant]
     Indication: BLOOD PRESSURE

REACTIONS (10)
  - Joint swelling [Not Recovered/Not Resolved]
  - Joint swelling [Not Recovered/Not Resolved]
  - Local swelling [Not Recovered/Not Resolved]
  - Weight increased [Recovering/Resolving]
  - Blood pressure fluctuation [Recovered/Resolved]
  - Skin discolouration [Recovering/Resolving]
  - Skin mass [Recovered/Resolved]
  - Gait disturbance [Not Recovered/Not Resolved]
  - Poor peripheral circulation [Recovering/Resolving]
  - Arthralgia [Not Recovered/Not Resolved]
